FAERS Safety Report 12323277 (Version 1)
Quarter: 2016Q2

REPORT INFORMATION
  Report Type: Spontaneous
  Country: US (occurrence: US)
  Receive Date: 20160502
  Receipt Date: 20160502
  Transmission Date: 20160815
  Serious: No
  Sender: FDA-Public Use
  Company Number: US-JNJFOC-20160322178

PATIENT
  Age: 46 Year
  Sex: Female
  Weight: 54.43 kg

DRUGS (3)
  1. ADDERALL [Concomitant]
     Active Substance: AMPHETAMINE ASPARTATE\AMPHETAMINE SULFATE\DEXTROAMPHETAMINE SACCHARATE\DEXTROAMPHETAMINE SULFATE
     Indication: ARTHRITIS
     Route: 065
     Dates: start: 2009
  2. REMICADE [Suspect]
     Active Substance: INFLIXIMAB
     Indication: PSORIATIC ARTHROPATHY
     Route: 042
     Dates: start: 201510
  3. OTEZLA [Concomitant]
     Active Substance: APREMILAST
     Indication: PSORIATIC ARTHROPATHY
     Route: 065
     Dates: start: 201406

REACTIONS (6)
  - Product use issue [Unknown]
  - Amenorrhoea [Not Recovered/Not Resolved]
  - Blood cholesterol increased [Unknown]
  - Off label use [Unknown]
  - Blood triglycerides increased [Unknown]
  - Progesterone decreased [Unknown]

NARRATIVE: CASE EVENT DATE: 201510
